FAERS Safety Report 9405489 (Version 2)
Quarter: 2013Q3

REPORT INFORMATION
  Report Type: Spontaneous
  Country: US (occurrence: US)
  Receive Date: 20130717
  Receipt Date: 20130805
  Transmission Date: 20140515
  Serious: No
  Sender: FDA-Public Use
  Company Number: US-B.I. PHARMACEUTICALS,INC./RIDGEFIELD-2013-BI-20236BP

PATIENT
  Age: 87 Year
  Sex: Female
  Weight: 61 kg

DRUGS (6)
  1. COMBIVENT [Suspect]
     Indication: CHRONIC OBSTRUCTIVE PULMONARY DISEASE
     Dosage: STRENGTH: 20 MCG / 100 MCG; DAILY DOSE: 80MCG/400MCG
     Route: 055
     Dates: start: 20130713
  2. COMBIVENT [Suspect]
     Dosage: STRENGTH-20MCG/100MCG; DAILY DOSE- 80MCG/400MCG
     Route: 055
     Dates: start: 20130713
  3. COMBIVENT [Suspect]
     Indication: CHRONIC OBSTRUCTIVE PULMONARY DISEASE
     Dosage: STRENGTH: 18 MCG / 103 MCG; DAILY DOSE: 144MCG/824MCG
     Route: 055
     Dates: start: 2003, end: 20130712
  4. COMBIVENT [Suspect]
     Dosage: STRENGTH-18MCG/103MCG; DAILY DOSE-144MCG/824MCG
     Route: 055
     Dates: end: 20130712
  5. IPRATROPIUM NEBULIZER [Concomitant]
     Indication: ASTHMA
     Dosage: STRENGTH: 1 VIAL; DAILY DOSE: 3 VIALS
     Route: 055
     Dates: start: 2001
  6. ALBUTEROL NEBULIZER [Concomitant]
     Indication: ASTHMA
     Dosage: STRENGTH: 1 VIAL; DAILY DOSE: 3 VIALS
     Route: 055
     Dates: start: 2001

REACTIONS (5)
  - Cough [Not Recovered/Not Resolved]
  - Oropharyngeal pain [Not Recovered/Not Resolved]
  - Dysphonia [Not Recovered/Not Resolved]
  - Cough [Not Recovered/Not Resolved]
  - Choking [Not Recovered/Not Resolved]
